FAERS Safety Report 6870164-9 (Version None)
Quarter: 2010Q3

REPORT INFORMATION
  Report Type: 
  Country: None (occurrence: None)
  Receive Date: 20100712
  Receipt Date: 20100624
  Transmission Date: 20110219
  Serious: Yes (Other)
  Sender: FDA-Public Use
  Company Number: AEUSA201000190

PATIENT
  Age: 82 Year
  Sex: Female

DRUGS (8)
  1. PROLASTIN-C [Suspect]
     Indication: ALPHA-1 ANTI-TRYPSIN DEFICIENCY
     Dosage: QOW; IV
     Route: 042
     Dates: start: 20100511
  2. DUONEB [Concomitant]
  3. DYAZIDE [Concomitant]
  4. ALTACE [Concomitant]
  5. CARDIZEM [Concomitant]
  6. DIGOXIN [Concomitant]
  7. POTASSIUM [Concomitant]
  8. PROLASTIN [Concomitant]

REACTIONS (4)
  - BURNING SENSATION [None]
  - DRUG HYPERSENSITIVITY [None]
  - FEELING ABNORMAL [None]
  - INFUSION RELATED REACTION [None]
